FAERS Safety Report 6924515-7 (Version None)
Quarter: 2010Q3

REPORT INFORMATION
  Report Type: 
  Country: None (occurrence: None)
  Receive Date: 20100816
  Receipt Date: 20100804
  Transmission Date: 20110219
  Serious: Yes (Hospitalization)
  Sender: FDA-Public Use
  Company Number: US-BIOGENIDEC-2010BI024353

PATIENT
  Age: 58 Year
  Sex: Female
  Weight: 119 kg

DRUGS (4)
  1. AVONEX [Suspect]
     Indication: MULTIPLE SCLEROSIS
     Route: 030
     Dates: start: 19990101, end: 20030101
  2. AVONEX [Suspect]
     Route: 030
     Dates: start: 20030101, end: 20091019
  3. AVONEX [Suspect]
     Route: 030
     Dates: start: 20100804
  4. TEGRETOL [Concomitant]
     Indication: TRIGEMINAL NEURALGIA

REACTIONS (6)
  - FATIGUE [None]
  - INTERVERTEBRAL DISC PROTRUSION [None]
  - NECK INJURY [None]
  - NECK PAIN [None]
  - ROAD TRAFFIC ACCIDENT [None]
  - SPINAL COLUMN INJURY [None]
